FAERS Safety Report 24071177 (Version 1)
Quarter: 2024Q3

REPORT INFORMATION
  Report Type: Report from Study
  Country: CN (occurrence: CN)
  Receive Date: 20240710
  Receipt Date: 20240710
  Transmission Date: 20241017
  Serious: No
  Sender: ROCHE
  Company Number: CN-ROCHE-3578982

PATIENT
  Age: 60 Year
  Sex: Male
  Weight: 76.0 kg

DRUGS (17)
  1. ALECTINIB [Suspect]
     Active Substance: ALECTINIB
     Indication: Non-small cell lung cancer
     Route: 048
     Dates: start: 20230217
  2. ALECTINIB [Suspect]
     Active Substance: ALECTINIB
     Route: 048
     Dates: start: 20230213
  3. AMLODIPINE [Concomitant]
     Active Substance: AMLODIPINE BESYLATE
     Indication: Hypertension
     Dosage: 1 TABLET
     Route: 048
     Dates: start: 2016
  4. VALSARTAN [Concomitant]
     Active Substance: VALSARTAN
     Indication: Hypertension
     Dosage: 1 TABLET
     Route: 048
     Dates: start: 2016
  5. METFORMIN HYDROCHLORIDE [Concomitant]
     Active Substance: METFORMIN HYDROCHLORIDE
     Indication: Diabetes mellitus
     Route: 048
     Dates: start: 2016
  6. ASPIRIN [Concomitant]
     Active Substance: ASPIRIN
     Indication: Coronary artery disease
     Route: 048
     Dates: start: 2022
  7. BENSERAZIDE HYDROCHLORIDE\LEVODOPA [Concomitant]
     Active Substance: BENSERAZIDE HYDROCHLORIDE\LEVODOPA
     Indication: Parkinson^s disease
     Route: 048
     Dates: start: 2020
  8. ROSUVASTATIN CALCIUM [Concomitant]
     Active Substance: ROSUVASTATIN CALCIUM
     Indication: Hyperlipidaemia
     Route: 048
     Dates: start: 2021
  9. KETOCONAZOLE [Concomitant]
     Active Substance: KETOCONAZOLE
     Indication: Psoriasis
     Route: 062
     Dates: start: 2021
  10. MOXIFLOXACIN HYDROCHLORIDE [Concomitant]
     Active Substance: MOXIFLOXACIN HYDROCHLORIDE\MOXIFLOXACIN HYDROCHLORIDE MONOHYDRATE
     Indication: Pneumonia
     Route: 048
     Dates: start: 20231227, end: 20240206
  11. MOXIFLOXACIN HYDROCHLORIDE [Concomitant]
     Active Substance: MOXIFLOXACIN HYDROCHLORIDE\MOXIFLOXACIN HYDROCHLORIDE MONOHYDRATE
     Route: 048
     Dates: start: 20240428, end: 20240513
  12. ROXITHROMYCIN [Concomitant]
     Active Substance: ROXITHROMYCIN
     Indication: Pneumonia
     Route: 048
     Dates: start: 20240219
  13. AMOXICILLIN AND CLAVULANATE POTASSIUM [Concomitant]
     Active Substance: AMOXICILLIN\CLAVULANATE POTASSIUM
     Indication: Pneumonia
     Route: 048
     Dates: start: 20240219, end: 20240227
  14. INCADRONATE DISODIUM [Concomitant]
     Active Substance: INCADRONATE DISODIUM
     Indication: Metastases to bone
     Route: 042
     Dates: start: 20240205, end: 20240205
  15. CEFACLOR [Concomitant]
     Active Substance: CEFACLOR
     Indication: Pneumonia
     Route: 048
     Dates: start: 20240304, end: 20240312
  16. COMPOUND PSEUDOEPHEDRINE HYDROCHLORIDE TABLETS [Concomitant]
     Indication: Pneumonia
     Dosage: 1 TABLET
     Route: 048
     Dates: start: 20240304, end: 20240314
  17. COMPOUND PSEUDOEPHEDRINE HYDROCHLORIDE TABLETS [Concomitant]
     Dosage: 1 CAPSULE
     Route: 048
     Dates: start: 20240428, end: 20240506

REACTIONS (2)
  - Nasopharyngitis [Recovered/Resolved]
  - Chronic obstructive pulmonary disease [Not Recovered/Not Resolved]

NARRATIVE: CASE EVENT DATE: 20240304
